FAERS Safety Report 8020542-X (Version None)
Quarter: 2012Q1

REPORT INFORMATION
  Report Type: 
  Country: None (occurrence: None)
  Receive Date: 20120103
  Receipt Date: 20111222
  Transmission Date: 20120608
  Serious: Yes (Other)
  Sender: FDA-Public Use
  Company Number: JP-ROCHE-1007437

PATIENT
  Sex: Male
  Weight: 53 kg

DRUGS (14)
  1. CARVEDILOL [Concomitant]
     Indication: ANGINA PECTORIS
     Route: 048
     Dates: start: 20060630
  2. MICARDIS [Concomitant]
     Route: 048
     Dates: start: 20111008
  3. MIRCERA [Suspect]
     Indication: NEPHROGENIC ANAEMIA
     Route: 042
     Dates: start: 20110809, end: 20110913
  4. SELBEX [Concomitant]
     Indication: GASTRITIS
     Route: 048
     Dates: start: 20081201
  5. LANSOPRAZOLE [Concomitant]
     Indication: GASTROOESOPHAGEAL REFLUX DISEASE
     Route: 048
     Dates: start: 20090408
  6. CALCIUM CARBONATE [Concomitant]
     Indication: HYPERPHOSPHATAEMIA
     Dosage: REPORTED AS CALTAN OD
     Route: 048
     Dates: start: 20100427
  7. CANDESARTAN CILEXETIL [Concomitant]
     Indication: HYPERTENSION
     Dosage: REPORTED AS UNISIA
     Route: 048
     Dates: start: 20110618
  8. VERAPAMIL HCL [Concomitant]
     Indication: ANGINA PECTORIS
     Route: 048
     Dates: start: 20041020
  9. FOSRENOL [Concomitant]
     Indication: HYPERPHOSPHATAEMIA
     Route: 048
     Dates: start: 20100326
  10. OXAROL [Concomitant]
     Indication: HYPERPARATHYROIDISM SECONDARY
     Route: 042
     Dates: start: 20101022
  11. ZOLPIDEM [Concomitant]
     Indication: INSOMNIA
     Route: 048
     Dates: start: 20090313
  12. ADALAT [Concomitant]
     Indication: HYPERTENSION
     Route: 048
     Dates: start: 20081107
  13. HYPOCA [Concomitant]
     Indication: HYPERTENSION
     Route: 048
     Dates: start: 20100625
  14. MICARDIS [Concomitant]
     Indication: HYPERTENSION
     Route: 048
     Dates: start: 20101231, end: 20111001

REACTIONS (1)
  - HAEMOGLOBIN DECREASED [None]
